FAERS Safety Report 5476449-5 (Version None)
Quarter: 2007Q4

REPORT INFORMATION
  Report Type: 
  Country: None (occurrence: None)
  Receive Date: 20071003
  Receipt Date: 20070921
  Transmission Date: 20080405
  Serious: Yes (Other)
  Sender: FDA-Public Use
  Company Number: US-PFIZER INC-2007080692

PATIENT
  Sex: Female
  Weight: 47.6 kg

DRUGS (2)
  1. CHANTIX [Suspect]
     Indication: EX-SMOKER
     Dates: start: 20070909, end: 20070920
  2. CALCIUM [Concomitant]

REACTIONS (4)
  - DEPRESSION [None]
  - HOMICIDAL IDEATION [None]
  - PARALYSIS [None]
  - SUICIDAL IDEATION [None]
